FAERS Safety Report 23169174 (Version 1)
Quarter: 2023Q4

REPORT INFORMATION
  Report Type: Spontaneous
  Country: SI (occurrence: SI)
  Receive Date: 20231110
  Receipt Date: 20231110
  Transmission Date: 20240109
  Serious: Yes (Other)
  Sender: FDA-Public Use
  Company Number: SI-JUBILANT CADISTA PHARMACEUTICALS-2023SI001374

PATIENT
  Age: 24 Year
  Sex: Male

DRUGS (8)
  1. MONTELUKAST SODIUM [Suspect]
     Active Substance: MONTELUKAST SODIUM
     Indication: Product used for unknown indication
     Dosage: 10 MG,  UNK
  2. PANTOPRAZOLE SODIUM [Suspect]
     Active Substance: PANTOPRAZOLE SODIUM
     Indication: Product used for unknown indication
     Dosage: 40 MG,  UNK
  3. CYCLOSPORINE [Suspect]
     Active Substance: CYCLOSPORINE
     Indication: Product used for unknown indication
     Dosage: 100  MG+100  MG+150 MG
  4. NAPROXEN [Suspect]
     Active Substance: NAPROXEN
     Indication: Pain management
     Dosage: 550 MG, 2 TIMES PER DAY
  5. BILASTINE [Suspect]
     Active Substance: BILASTINE
     Indication: Product used for unknown indication
     Dosage: 40 MG, 2 TIMES PER DAY (20 MG ?2 TABLETS EVERY 12 HOURS)
  6. TICAGRELOR [Suspect]
     Active Substance: TICAGRELOR
     Indication: Product used for unknown indication
     Dosage: 90 MG, 2 TIMES PER DAY
  7. PREDNISOLONE [Suspect]
     Active Substance: PREDNISOLONE
     Indication: Product used for unknown indication
     Dosage: 40 MG,  UNK
  8. PREDNISOLONE [Suspect]
     Active Substance: PREDNISOLONE
     Dosage: 20 MG,  UNK (REDUCED BY 5 MG WEEKLY TO 20 MG PER DAY)

REACTIONS (11)
  - Urticarial vasculitis [Unknown]
  - Cutaneous vasculitis [Unknown]
  - Condition aggravated [Unknown]
  - Diarrhoea [Unknown]
  - Abdominal distension [Unknown]
  - Lymphadenopathy [Unknown]
  - Arthralgia [Unknown]
  - Urticaria [Unknown]
  - Haematuria [Unknown]
  - Angioedema [Unknown]
  - Dyspnoea [Unknown]
